FAERS Safety Report 5240364-2 (Version None)
Quarter: 2007Q1

REPORT INFORMATION
  Report Type: 
  Country: None (occurrence: None)
  Receive Date: 20070219
  Receipt Date: 20070205
  Transmission Date: 20070707
  Serious: Yes (Hospitalization)
  Sender: FDA-Public Use
  Company Number: PHHO2007TR00604

PATIENT
  Age: 32 Year
  Sex: Male
  Weight: 69 kg

DRUGS (4)
  1. STEROIDS NOS [Concomitant]
     Indication: RENAL TRANSPLANT
     Dosage: 40 MG
     Route: 048
  2. AUGMENTIN '125' [Concomitant]
  3. CERTICAN [Suspect]
     Indication: RENAL TRANSPLANT
     Dosage: 1.25 MG, BID
     Route: 048
     Dates: start: 20060912, end: 20070105
  4. NEORAL [Suspect]
     Dosage: 225 MG/DAY
     Route: 048
     Dates: start: 20060909

REACTIONS (11)
  - ANAEMIA [None]
  - BLOOD CREATININE INCREASED [None]
  - BONE MARROW FAILURE [None]
  - DIARRHOEA [None]
  - KIDNEY TRANSPLANT REJECTION [None]
  - LEUKOPENIA [None]
  - NEPHRECTOMY [None]
  - PANCYTOPENIA [None]
  - PYREXIA [None]
  - RENAL FAILURE ACUTE [None]
  - THROMBOCYTOPENIA [None]
